FAERS Safety Report 10553187 (Version 2)
Quarter: 2014Q4

REPORT INFORMATION
  Report Type: Spontaneous
  Country: FR (occurrence: FR)
  Receive Date: 20141030
  Receipt Date: 20141030
  Transmission Date: 20150529
  Serious: Yes (Other)
  Sender: FDA-Public Use
  Company Number: FR-ROCHE-1425400

PATIENT
  Age: 49 Year
  Sex: Female

DRUGS (1)
  1. ZELBORAF [Suspect]
     Active Substance: VEMURAFENIB
     Indication: METASTATIC MALIGNANT MELANOMA
     Dosage: DOSE WAS REDUCED TO 6 DF DAILY INSTEAD OF 8 DF DAILY.
     Route: 048
     Dates: start: 20140613, end: 20141006

REACTIONS (7)
  - Decreased appetite [Recovering/Resolving]
  - Arthralgia [Recovering/Resolving]
  - Pharyngeal oedema [Recovered/Resolved]
  - Photosensitivity reaction [Recovering/Resolving]
  - Blister [Unknown]
  - Fatigue [Recovering/Resolving]
  - Sunburn [Recovering/Resolving]

NARRATIVE: CASE EVENT DATE: 20140630
